FAERS Safety Report 18462975 (Version 6)
Quarter: 2021Q1

REPORT INFORMATION
  Report Type: Spontaneous
  Country: US (occurrence: US)
  Receive Date: 20201104
  Receipt Date: 20210115
  Transmission Date: 20210419
  Serious: No
  Sender: FDA-Public Use
  Company Number: US-PFIZER INC-2020426986

PATIENT
  Age: 63 Year
  Sex: Female

DRUGS (2)
  1. IBRANCE [Suspect]
     Active Substance: PALBOCICLIB
     Dosage: 125 MG
     Dates: start: 20201026, end: 2020
  2. IBRANCE [Suspect]
     Active Substance: PALBOCICLIB
     Dosage: 125 MG
     Dates: start: 20201101

REACTIONS (5)
  - Sleep disorder [Unknown]
  - Abdominal discomfort [Unknown]
  - Alopecia [Unknown]
  - Diarrhoea [Recovering/Resolving]
  - Middle insomnia [Recovering/Resolving]

NARRATIVE: CASE EVENT DATE: 2020
